FAERS Safety Report 8354454-9 (Version None)
Quarter: 2012Q2

REPORT INFORMATION
  Report Type: 
  Country: None (occurrence: None)
  Receive Date: 20120511
  Receipt Date: 20120502
  Transmission Date: 20120825
  Serious: Yes (Other)
  Sender: FDA-Public Use
  Company Number: US-ASTRAZENECA-2010SE45809

PATIENT
  Age: 56 Year
  Sex: Female

DRUGS (6)
  1. EFFEXOR [Concomitant]
  2. CRESTOR [Suspect]
     Route: 048
  3. VISTORIL [Concomitant]
  4. NEXIUM [Suspect]
     Route: 048
  5. CLONAZEPAM [Concomitant]
  6. TOPROL-XL [Suspect]
     Dosage: 50 MG HALF IN THE MORNING AND HALF AT NIGHT
     Route: 048

REACTIONS (13)
  - OSTEOARTHRITIS [None]
  - WRIST FRACTURE [None]
  - UPPER LIMB FRACTURE [None]
  - MYOCARDIAL INFARCTION [None]
  - LOWER LIMB FRACTURE [None]
  - INTENTIONAL DRUG MISUSE [None]
  - WOUND [None]
  - MUSCLE HAEMORRHAGE [None]
  - OSTEOPOROSIS [None]
  - ANKLE FRACTURE [None]
  - GASTROOESOPHAGEAL REFLUX DISEASE [None]
  - CONTUSION [None]
  - FALL [None]
